FAERS Safety Report 7865552-8 (Version None)
Quarter: 2011Q4

REPORT INFORMATION
  Report Type: 
  Country: None (occurrence: None)
  Receive Date: 20111028
  Receipt Date: 20110117
  Transmission Date: 20120403
  Serious: No
  Sender: FDA-Public Use
  Company Number: US-GLAXOSMITHKLINE-A0906491A

PATIENT
  Age: 54 Year
  Sex: Female

DRUGS (8)
  1. ADVAIR DISKUS 100/50 [Suspect]
     Indication: ASTHMA
     Dosage: 1PUFF TWICE PER DAY
     Route: 055
     Dates: start: 20000101
  2. PLAVIX [Concomitant]
  3. PROVENTIL [Concomitant]
  4. LOPRESSOR [Concomitant]
  5. ZOCOR [Concomitant]
  6. CELEBREX [Concomitant]
  7. PROTONIX [Concomitant]
  8. ALLEGRA [Concomitant]

REACTIONS (5)
  - EYE INFECTION [None]
  - OCULAR HYPERAEMIA [None]
  - LACRIMATION INCREASED [None]
  - EYE IRRITATION [None]
  - EYE PRURITUS [None]
